FAERS Safety Report 6566252-7 (Version None)
Quarter: 2010Q1

REPORT INFORMATION
  Report Type: 
  Country: None (occurrence: None)
  Receive Date: 20100202
  Receipt Date: 20100121
  Transmission Date: 20100710
  Serious: Yes (Other)
  Sender: FDA-Public Use
  Company Number: PT-JNJFOC-20100103440

PATIENT
  Sex: Female
  Weight: 62 kg

DRUGS (6)
  1. REMICADE [Suspect]
     Indication: CROHN'S DISEASE
     Dosage: 5 MG/KG
     Route: 042
     Dates: start: 20091101, end: 20091125
  2. REMICADE [Suspect]
     Dosage: 5 MG/KG
     Route: 042
     Dates: start: 20091101, end: 20091125
  3. MERCAPTOPURINE [Concomitant]
     Route: 048
  4. HYDROCORTISONE [Concomitant]
     Indication: PREMEDICATION
  5. HYDROCORTISONE [Concomitant]
  6. ANTIHISTAMINE [Concomitant]

REACTIONS (8)
  - ANXIETY [None]
  - BACK PAIN [None]
  - HYPERSENSITIVITY [None]
  - INFUSION RELATED REACTION [None]
  - MOBILITY DECREASED [None]
  - MUSCLE SPASMS [None]
  - MYALGIA [None]
  - OEDEMA PERIPHERAL [None]
